FAERS Safety Report 24088414 (Version 2)
Quarter: 2024Q3

REPORT INFORMATION
  Report Type: Spontaneous
  Country: EG (occurrence: EG)
  Receive Date: 20240715
  Receipt Date: 20240926
  Transmission Date: 20241016
  Serious: Yes (Hospitalization)
  Sender: ROCHE
  Company Number: EG-002147023-NVSC2024EG139404

PATIENT
  Age: 45 Year
  Sex: Male

DRUGS (1)
  1. OMALIZUMAB [Suspect]
     Active Substance: OMALIZUMAB
     Indication: Asthma
     Dosage: FIRST DOSE
     Route: 065

REACTIONS (5)
  - Guillain-Barre syndrome [Unknown]
  - Quadriparesis [Unknown]
  - Muscular weakness [Unknown]
  - Hyperreflexia [Unknown]
  - Paraesthesia [Unknown]
